FAERS Safety Report 9702567 (Version 2)
Quarter: 2013Q4

REPORT INFORMATION
  Report Type: Report from Study
  Country: US (occurrence: US)
  Receive Date: 20131121
  Receipt Date: 20131121
  Transmission Date: 20140711
  Serious: Yes (Death)
  Sender: FDA-Public Use
  Company Number: US-ACTELION-A-US2013-85218

PATIENT
  Age: 37 Year
  Sex: Female

DRUGS (2)
  1. TRACLEER [Suspect]
     Indication: PULMONARY ARTERIAL HYPERTENSION
     Dosage: 125 MG, BID
     Route: 048
     Dates: start: 20090519
  2. SILDENAFIL [Concomitant]

REACTIONS (15)
  - Death [Fatal]
  - Ocular icterus [Unknown]
  - Muscle spasms [Unknown]
  - Abdominal pain [Unknown]
  - Fatigue [Unknown]
  - Decreased appetite [Unknown]
  - Nausea [Unknown]
  - Dyspnoea [Unknown]
  - Oedema [Unknown]
  - Pulmonary arterial hypertension [Unknown]
  - Asthenia [Unknown]
  - Vomiting [Unknown]
  - Fluid retention [Unknown]
  - Blood pressure decreased [Unknown]
  - Catheterisation cardiac abnormal [Unknown]
